FAERS Safety Report 10787443 (Version 2)
Quarter: 2015Q2

REPORT INFORMATION
  Report Type: Report from Study
  Country: FR (occurrence: FR)
  Receive Date: 20150212
  Receipt Date: 20150414
  Transmission Date: 20150821
  Serious: Yes (Hospitalization)
  Sender: FDA-Public Use
  Company Number: FR-ROCHE-1536740

PATIENT
  Age: 67 Year
  Sex: Female
  Weight: 46 kg

DRUGS (5)
  1. FLUOROURACIL. [Suspect]
     Active Substance: FLUOROURACIL
     Dosage: LAST ADMINISTRATION BEFORE OCCURRENCE OF SAE ON 12/NOV/2014
     Route: 040
     Dates: start: 20141112
  2. OXALIPLATIN. [Suspect]
     Active Substance: OXALIPLATIN
     Indication: COLORECTAL CANCER METASTATIC
     Dosage: LAST ADMINISTRATION BEFORE OCCURRENCE OF SAE ON 12/NOV/2014
     Route: 065
     Dates: start: 20141028
  3. FLUOROURACIL. [Suspect]
     Active Substance: FLUOROURACIL
     Indication: COLORECTAL CANCER METASTATIC
     Dosage: LAST ADMINISTRATION BEFORE OCCURRENCE OF SAE ON 12/NOV/2014
     Route: 065
     Dates: start: 20141028
  4. FOLINIC ACID [Suspect]
     Active Substance: LEUCOVORIN
     Indication: COLORECTAL CANCER METASTATIC
     Dosage: LAST ADMINISTRATION BEFORE OCCURRENCE OF SAE ON 12/NOV/2014
     Route: 065
     Dates: start: 20141028
  5. BEVACIZUMAB [Suspect]
     Active Substance: BEVACIZUMAB
     Indication: COLORECTAL CANCER METASTATIC
     Dosage: DATE OF LAST ADMINISTRATION BEFORE OCCURRENCE OF SAE ON 12/NOV/2014
     Route: 065
     Dates: start: 20141112

REACTIONS (1)
  - Colitis ischaemic [Recovered/Resolved]

NARRATIVE: CASE EVENT DATE: 20141128
